FAERS Safety Report 7411612-5 (Version None)
Quarter: 2011Q2

REPORT INFORMATION
  Report Type: 
  Country: None (occurrence: None)
  Receive Date: 20110413
  Receipt Date: 20100927
  Transmission Date: 20111010
  Serious: Yes (Other)
  Sender: FDA-Public Use
  Company Number: US-BRISTOL-MYERS SQUIBB COMPANY-15307598

PATIENT
  Sex: Male

DRUGS (4)
  1. HYDROCORTISONE [Concomitant]
     Indication: PREMEDICATION
  2. ERBITUX [Suspect]
  3. ALBUTEROL [Concomitant]
     Indication: PREMEDICATION
  4. BENADRYL [Concomitant]
     Indication: PREMEDICATION

REACTIONS (1)
  - INFUSION RELATED REACTION [None]
